FAERS Safety Report 12783007 (Version 1)
Quarter: 2016Q3

REPORT INFORMATION
  Report Type: Spontaneous
  Country: US (occurrence: US)
  Receive Date: 20160926
  Receipt Date: 20160926
  Transmission Date: 20161109
  Serious: Yes (Other)
  Sender: FDA-Public Use
  Company Number: None

PATIENT
  Sex: Female

DRUGS (3)
  1. LOTEMAX [Suspect]
     Active Substance: LOTEPREDNOL ETABONATE
     Indication: OCULAR HYPERAEMIA
     Route: 047
     Dates: start: 20160905, end: 20160912
  2. TRAVATAN [Suspect]
     Active Substance: TRAVOPROST
     Indication: GLAUCOMA
     Route: 047
  3. VIGAMOX [Suspect]
     Active Substance: MOXIFLOXACIN HYDROCHLORIDE

REACTIONS (3)
  - Expired product administered [None]
  - Eye irritation [None]
  - Eye pain [None]

NARRATIVE: CASE EVENT DATE: 20160905
